FAERS Safety Report 9333291 (Version 4)
Quarter: 2013Q3

REPORT INFORMATION
  Report Type: Spontaneous
  Country: IT (occurrence: IT)
  Receive Date: 20130606
  Receipt Date: 20130703
  Transmission Date: 20140515
  Serious: Yes (Life-Threatening)
  Sender: FDA-Public Use
  Company Number: PHHY2013IT056850

PATIENT
  Age: 86 Year
  Sex: Male

DRUGS (11)
  1. DICLOFENAC [Suspect]
     Indication: BACK PAIN
     Dosage: UNK UKN, UNK
     Route: 030
     Dates: start: 20130525, end: 20130527
  2. METFORMIN [Interacting]
     Indication: TYPE 2 DIABETES MELLITUS
     Dosage: 500 MG, BID
     Route: 048
     Dates: start: 20090101, end: 20130527
  3. MICARDIS PLUS [Interacting]
     Indication: ESSENTIAL HYPERTENSION
     Dosage: 1 DF, QD
     Route: 048
  4. CITALOPRAM [Concomitant]
     Indication: DEPRESSION
     Dosage: 1 DF, UNK
     Route: 048
  5. ASPIRINE [Concomitant]
     Indication: THROMBOSIS PROPHYLAXIS
     Dosage: 450 MG, UNK
     Route: 048
  6. OMEPRAZOLE [Concomitant]
     Dosage: 1 DF, QD
     Route: 048
  7. INEGY [Concomitant]
     Indication: DYSLIPIDAEMIA
     Dosage: 1 DF, QD
     Route: 048
  8. CARVEDILOL [Concomitant]
     Dosage: 1 DF, BID
     Route: 048
  9. LASIX [Concomitant]
     Indication: HYPERTENSION
     Dosage: 2 DF, QD
     Route: 048
  10. LASIX [Concomitant]
     Dosage: 1 VIAL HOUR 8-20
  11. PANTOL [Concomitant]
     Indication: BACK PAIN
     Dosage: UNK UKN, UNK
     Dates: start: 20130524

REACTIONS (4)
  - Lactic acidosis [Recovered/Resolved]
  - Renal failure acute [Recovered/Resolved]
  - Anuria [Recovered/Resolved]
  - Drug interaction [Recovered/Resolved]
